FAERS Safety Report 8079611-0 (Version None)
Quarter: 2012Q1

REPORT INFORMATION
  Report Type: 
  Country: None (occurrence: None)
  Receive Date: 20120128
  Receipt Date: 20110830
  Transmission Date: 20120608
  Serious: No
  Sender: FDA-Public Use
  Company Number: US-ABBOTT-11P-163-0850521-00

PATIENT
  Age: 43 Year
  Sex: Female

DRUGS (6)
  1. HUMIRA [Suspect]
     Indication: PSORIATIC ARTHROPATHY
     Dates: start: 20070101, end: 20100901
  2. SYNTHROID [Concomitant]
     Indication: PRODUCT USED FOR UNKNOWN INDICATION
  3. MELOXICAM [Concomitant]
     Indication: RHEUMATOID ARTHRITIS
  4. HUMIRA [Suspect]
     Dates: start: 20110301
  5. LONG ACTING INSULIN [Concomitant]
     Indication: DIABETES MELLITUS
  6. REGULAR INSULIN [Concomitant]
     Dosage: SLIDING SCALE

REACTIONS (4)
  - PARAESTHESIA [None]
  - FATIGUE [None]
  - SENSATION OF HEAVINESS [None]
  - FEELING ABNORMAL [None]
